FAERS Safety Report 16181175 (Version 1)
Quarter: 2019Q2

REPORT INFORMATION
  Report Type: Spontaneous
  Country: FR (occurrence: FR)
  Receive Date: 20190410
  Receipt Date: 20190410
  Transmission Date: 20190711
  Serious: Yes (Death)
  Sender: FDA-Public Use
  Company Number: FR-TEVA-2019-FR-1034658

PATIENT
  Age: 30 Year
  Sex: Female

DRUGS (5)
  1. TERCIAN [Suspect]
     Active Substance: CYAMEMAZINE
     Route: 065
  2. NOZINAN [Suspect]
     Active Substance: LEVOMEPROMAZINE
     Route: 065
  3. RISPERIDONE. [Suspect]
     Active Substance: RISPERIDONE
     Route: 065
  4. SERESTA [Suspect]
     Active Substance: OXAZEPAM
     Route: 065
  5. METHADONE [Suspect]
     Active Substance: METHADONE HYDROCHLORIDE
     Route: 065

REACTIONS (1)
  - Death [Fatal]

NARRATIVE: CASE EVENT DATE: 2016
